FAERS Safety Report 5200458-4 (Version None)
Quarter: 2006Q4

REPORT INFORMATION
  Report Type: 
  Country: None (occurrence: None)
  Receive Date: 20061016
  Receipt Date: 20060821
  Transmission Date: 20070319
  Serious: No
  Sender: FDA-Public Use
  Company Number: 2006SP003074

PATIENT
  Age: 79 Year
  Sex: Female
  Weight: 70.7611 kg

DRUGS (12)
  1. LUNESTA [Suspect]
     Indication: SLEEP DISORDER
     Dosage: SEE IMAGE, ORAL
     Route: 048
     Dates: start: 20060820, end: 20060820
  2. LUNESTA [Suspect]
     Indication: SLEEP DISORDER
     Dosage: SEE IMAGE, ORAL
     Route: 048
     Dates: start: 20060710
  3. BENICAR [Concomitant]
  4. AMLODIPINE BESYLATE [Concomitant]
  5. METOPROLOL SUCCINATE [Concomitant]
  6. KLOR-CON [Concomitant]
  7. ACETYLSALICYLIC ACID SRT [Concomitant]
  8. FUROSEMIDE [Concomitant]
  9. PRAVACHOL [Concomitant]
  10. VITAMIN B-12 [Concomitant]
  11. NIACIN [Concomitant]
  12. CALCIUM [Concomitant]

REACTIONS (3)
  - DRUG INEFFECTIVE [None]
  - INSOMNIA [None]
  - SOMNOLENCE [None]
